FAERS Safety Report 22199702 (Version 2)
Quarter: 2023Q2

REPORT INFORMATION
  Report Type: Spontaneous
  Country: EG (occurrence: EG)
  Receive Date: 20230412
  Receipt Date: 20230508
  Transmission Date: 20230721
  Serious: Yes (Hospitalization, Other)
  Sender: FDA-Public Use
  Company Number: EG-NOVOPROD-1047197

PATIENT
  Age: 711 Month
  Sex: Male
  Weight: 170 kg

DRUGS (8)
  1. CONTROLOC [Concomitant]
     Active Substance: PANTOPRAZOLE SODIUM
     Indication: Gastric disorder
     Dosage: 1 TAB/DAY
     Route: 048
  2. NOVORAPID [Suspect]
     Active Substance: INSULIN ASPART
     Indication: Diabetes mellitus
     Dosage: 20U BEFORE EACH MEAL
     Route: 058
  3. GAPTIN [Concomitant]
     Indication: Hypersensitivity
     Dosage: 1 CAP/DAY
     Route: 048
  4. LANTUS [Concomitant]
     Active Substance: INSULIN GLARGINE
     Indication: Diabetes mellitus
     Dosage: 25 IU, QD
     Route: 058
  5. NORVASC [Concomitant]
     Active Substance: AMLODIPINE BESYLATE
     Indication: Hypertension
     Dosage: 10 MG 1 TAB/DAY
     Route: 048
  6. CALCIMATE [CALCIUM CARBONATE] [Concomitant]
     Indication: Calcium deficiency
     Dosage: 2 CAP/DAY
     Route: 048
  7. CALCIMATE [CALCIUM CARBONATE] [Concomitant]
     Indication: Hypovitaminosis
  8. ZYRTEC [Concomitant]
     Active Substance: CETIRIZINE HYDROCHLORIDE
     Indication: Hypersensitivity
     Dosage: 1 TAB/DAY
     Route: 048

REACTIONS (1)
  - Immune-mediated hepatic disorder [Recovered/Resolved]

NARRATIVE: CASE EVENT DATE: 20190901
